FAERS Safety Report 9564832 (Version 2)
Quarter: 2013Q4

REPORT INFORMATION
  Report Type: Spontaneous
  Country: US (occurrence: US)
  Receive Date: 20130930
  Receipt Date: 20131125
  Transmission Date: 20140711
  Serious: Yes (Hospitalization)
  Sender: FDA-Public Use
  Company Number: US-JNJFOC-20130915810

PATIENT
  Age: 23 Year
  Sex: Male
  Weight: 63.5 kg

DRUGS (4)
  1. RISPERDAL CONSTA [Suspect]
     Indication: SCHIZOPHRENIFORM DISORDER
     Route: 030
     Dates: start: 20130909
  2. RISPERIDONE [Suspect]
     Indication: SCHIZOPHRENIFORM DISORDER
     Route: 065
     Dates: start: 20120911
  3. DIPHENHYDRAMINE [Concomitant]
     Indication: ADVERSE DRUG REACTION
     Route: 065
     Dates: start: 20130909
  4. BENZOTROPINE [Concomitant]
     Indication: ADVERSE DRUG REACTION
     Route: 065
     Dates: start: 20120911

REACTIONS (2)
  - Psychotic disorder [Recovered/Resolved]
  - Treatment noncompliance [Unknown]
